FAERS Safety Report 17553143 (Version 1)
Quarter: 2020Q1

REPORT INFORMATION
  Report Type: Spontaneous
  Country: IT (occurrence: IT)
  Receive Date: 20200317
  Receipt Date: 20200317
  Transmission Date: 20200409
  Serious: Yes (Other)
  Sender: FDA-Public Use
  Company Number: IT-MYLANLABS-2020M1027178

PATIENT

DRUGS (1)
  1. PRASUGREL. [Suspect]
     Active Substance: PRASUGREL
     Indication: ACUTE CORONARY SYNDROME
     Dosage: UNK

REACTIONS (1)
  - Haemorrhage [Unknown]
